FAERS Safety Report 16141424 (Version 1)
Quarter: 2019Q2

REPORT INFORMATION
  Report Type: Spontaneous
  Country: US (occurrence: US)
  Receive Date: 20190401
  Receipt Date: 20190401
  Transmission Date: 20190711
  Serious: No
  Sender: FDA-Public Use
  Company Number: US-PFIZER INC-2019133530

PATIENT
  Age: 42 Year
  Sex: Female
  Weight: 90.72 kg

DRUGS (1)
  1. TESSALON [Suspect]
     Active Substance: BENZONATATE
     Indication: COUGH
     Dosage: 200 MG ONCE CAPSULE 3 TIMES A DAY
     Route: 048
     Dates: start: 201903, end: 201903

REACTIONS (1)
  - Drug ineffective [Unknown]

NARRATIVE: CASE EVENT DATE: 201903
